FAERS Safety Report 6271798-5 (Version None)
Quarter: 2009Q3

REPORT INFORMATION
  Report Type: 
  Country: None (occurrence: None)
  Receive Date: 20090717
  Receipt Date: 20090710
  Transmission Date: 20100115
  Serious: Yes (Life-Threatening, Other)
  Sender: FDA-Public Use
  Company Number: JP-PFIZER INC-2009207059

PATIENT
  Age: 64 Year

DRUGS (4)
  1. ATARAX [Suspect]
     Indication: URTICARIA
     Dosage: 25 MG, SINGLE
     Route: 030
     Dates: start: 20050704, end: 20050704
  2. EUGLUCON [Concomitant]
     Dosage: UNK
     Route: 048
     Dates: start: 20050108
  3. BASEN [Concomitant]
     Dosage: UNK
     Route: 048
     Dates: start: 20050108
  4. SIMVASTATIN [Concomitant]
     Dosage: UNK
     Route: 048
     Dates: start: 20050108

REACTIONS (2)
  - LOSS OF CONSCIOUSNESS [None]
  - SHOCK [None]
